FAERS Safety Report 14189353 (Version 1)
Quarter: 2017Q4

REPORT INFORMATION
  Report Type: Spontaneous
  Country: US (occurrence: US)
  Receive Date: 20171115
  Receipt Date: 20171115
  Transmission Date: 20180321
  Serious: No
  Sender: FDA-Public Use
  Company Number: US-ASTRAZENECA-2017SF14597

PATIENT
  Age: 27846 Day
  Sex: Male
  Weight: 68.9 kg

DRUGS (5)
  1. VITAMIN C [Concomitant]
     Active Substance: ASCORBIC ACID
     Indication: NASOPHARYNGITIS
     Route: 048
     Dates: start: 1990
  2. FAMOTIDINE. [Concomitant]
     Active Substance: FAMOTIDINE
     Indication: GASTROOESOPHAGEAL REFLUX DISEASE
     Route: 048
  3. NEXIUM [Suspect]
     Active Substance: ESOMEPRAZOLE MAGNESIUM
     Indication: GASTROOESOPHAGEAL REFLUX DISEASE
     Dosage: UNKNOWN
     Route: 048
     Dates: end: 201707
  4. MULTI VITAMIN SPECTRAVITE FOR MEN OVER 50 [Concomitant]
     Indication: PROPHYLAXIS
     Route: 048
  5. ROSUVASTATIN. [Suspect]
     Active Substance: ROSUVASTATIN
     Indication: BLOOD CHOLESTEROL DECREASED
     Route: 048
     Dates: start: 201709, end: 20171105

REACTIONS (3)
  - Nasopharyngitis [Recovering/Resolving]
  - Aphonia [Recovering/Resolving]
  - Myalgia [Recovering/Resolving]

NARRATIVE: CASE EVENT DATE: 20171105
